FAERS Safety Report 8832050 (Version 3)
Quarter: 2014Q2

REPORT INFORMATION
  Report Type: Spontaneous
  Country: US (occurrence: US)
  Receive Date: 20121009
  Receipt Date: 20131024
  Transmission Date: 20141212
  Serious: Yes (Other)
  Sender: FDA-Public Use
  Company Number: US-PFIZER INC-2012247766

PATIENT
  Age: 58 Year
  Sex: Female
  Weight: 47.6 kg

DRUGS (3)
  1. DEPO-MEDROL [Suspect]
     Indication: JOINT INJURY
     Dosage: 40 MG, SINGLE
     Route: 014
     Dates: start: 20120629, end: 20120629
  2. DEPO-MEDROL [Suspect]
     Indication: MUSCULOSKELETAL PAIN
  3. SIMVASTATIN [Concomitant]
     Dosage: 20 MG FOR 90 DAYS
     Dates: end: 20120813

REACTIONS (9)
  - Neuropathy peripheral [Not Recovered/Not Resolved]
  - Paraesthesia [Not Recovered/Not Resolved]
  - Lymphocyte percentage decreased [Unknown]
  - Pain [Not Recovered/Not Resolved]
  - Muscle atrophy [Unknown]
  - Insomnia [Not Recovered/Not Resolved]
  - Weight decreased [Unknown]
  - Musculoskeletal pain [Unknown]
  - Hypoaesthesia [Unknown]
